FAERS Safety Report 6979741-8 (Version None)
Quarter: 2010Q3

REPORT INFORMATION
  Report Type: 
  Country: None (occurrence: None)
  Receive Date: 20100914
  Receipt Date: 20100906
  Transmission Date: 20110219
  Serious: Yes (Death, Life-Threatening)
  Sender: FDA-Public Use
  Company Number: IT-ELI_LILLY_AND_COMPANY-IT201009000867

PATIENT
  Sex: Female
  Weight: 70 kg

DRUGS (11)
  1. PEMETREXED [Suspect]
     Indication: NON-SMALL CELL LUNG CANCER
     Dosage: 500 MG/M2, OTHER (DAY I EVEY 21 DAYS)
     Route: 042
     Dates: start: 20100315, end: 20100706
  2. CETUXIMAB [Suspect]
     Indication: NON-SMALL CELL LUNG CANCER
     Dosage: 400 MG/M2, OTHER (DAY 1 EVERY 21 DAYS)
     Route: 042
     Dates: start: 20100315
  3. CETUXIMAB [Suspect]
     Dosage: 250 MG/M2, WEEKLY (1/W)
     Route: 042
     Dates: end: 20100706
  4. CISPLATIN [Suspect]
     Indication: NON-SMALL CELL LUNG CANCER
     Dosage: 75 MG/M2, OTHER (DAY ONE EVERY 21 DAYS)
     Route: 042
     Dates: start: 20100315, end: 20100706
  5. FOLIC ACID [Concomitant]
     Indication: PROPHYLAXIS
     Dosage: UNK, UNKNOWN
     Dates: start: 20100304
  6. VITAMIN B-12 [Concomitant]
     Indication: PROPHYLAXIS
     Dates: start: 20100304, end: 20100706
  7. DEXAMETHASONE [Concomitant]
     Indication: PROPHYLAXIS
     Dates: start: 20100315, end: 20100706
  8. ANTIHISTAMINES [Concomitant]
     Indication: PROPHYLAXIS
     Dates: start: 20100315, end: 20100706
  9. LANSOPRAZOL [Concomitant]
     Indication: PROPHYLAXIS
     Dates: start: 20100304, end: 20100726
  10. CO-EFFERALGAN [Concomitant]
     Indication: CANCER PAIN
     Dates: start: 20100304, end: 20100726
  11. BISOPROLOL [Concomitant]
     Indication: HYPERTENSION
     Dates: end: 20100726

REACTIONS (1)
  - PANCYTOPENIA [None]
